FAERS Safety Report 9239010 (Version 3)
Quarter: 2013Q2

REPORT INFORMATION
  Report Type: Report from Study
  Country: BR (occurrence: BR)
  Receive Date: 20130418
  Receipt Date: 20130619
  Transmission Date: 20140414
  Serious: Yes (Hospitalization, Other)
  Sender: FDA-Public Use
  Company Number: BR-ROCHE-1214938

PATIENT
  Sex: Female
  Weight: 78 kg

DRUGS (10)
  1. XOLAIR [Suspect]
     Indication: LUNG DISORDER
     Route: 030
     Dates: start: 2012, end: 201204
  2. XOLAIR [Suspect]
     Indication: ASTHMA
  3. CLOPIDOGREL [Concomitant]
  4. AMINOPHYLLINE [Concomitant]
  5. ZOPICLONE [Concomitant]
  6. NAPROXEN [Concomitant]
  7. RIVOTRIL [Concomitant]
  8. INSULIN [Concomitant]
  9. AMITRIPTYLINE [Concomitant]
  10. NEUROCIL [Concomitant]

REACTIONS (5)
  - Asthma [Recovering/Resolving]
  - Traumatic lung injury [Recovering/Resolving]
  - Cardiac disorder [Unknown]
  - Dyspnoea [Recovering/Resolving]
  - Incorrect route of drug administration [Unknown]
